FAERS Safety Report 15597289 (Version 1)
Quarter: 2018Q4

REPORT INFORMATION
  Report Type: Spontaneous
  Country: US (occurrence: US)
  Receive Date: 20181102
  Receipt Date: 20181102
  Transmission Date: 20190205
  Serious: No
  Sender: FDA-Public Use
  Company Number: None

PATIENT
  Age: 69 Year
  Sex: Female

DRUGS (1)
  1. ENBREL [Suspect]
     Active Substance: ETANERCEPT
     Indication: RHEUMATOID ARTHRITIS
     Dates: start: 2015

REACTIONS (5)
  - Dry skin [None]
  - Feeling abnormal [None]
  - Tinnitus [None]
  - Fatigue [None]
  - Alopecia [None]

NARRATIVE: CASE EVENT DATE: 20181101
